FAERS Safety Report 8774747 (Version 1)
Quarter: 2012Q4

REPORT INFORMATION
  Report Type: 
  Country: US (occurrence: US)
  Receive Date: 20120910
  Receipt Date: 20120910
  Transmission Date: 20130627
  Serious: No
  Sender: FDA-Public Use
  Company Number: US-PFIZER INC-2012219245

PATIENT
  Age: 70 Year
  Sex: Female
  Weight: 51.7 kg

DRUGS (2)
  1. SUTENT [Suspect]
     Indication: RENAL CANCER
     Dosage: 50 mg, 1x/day
     Route: 048
     Dates: start: 201110, end: 201207
  2. WARFARIN [Concomitant]
     Dosage: UNK

REACTIONS (2)
  - Blood sodium decreased [Unknown]
  - Blood test abnormal [Unknown]
